FAERS Safety Report 19934281 (Version 2)
Quarter: 2021Q4

REPORT INFORMATION
  Report Type: Spontaneous
  Country: GB (occurrence: ES)
  Receive Date: 20211008
  Receipt Date: 20211116
  Transmission Date: 20220303
  Serious: Yes (Death, Hospitalization, Disabling, Other)
  Sender: FDA-Public Use
  Company Number: GB-BRISTOL-MYERS SQUIBB COMPANY-BMS-2021-101652

PATIENT
  Age: 58 Year
  Sex: Male

DRUGS (5)
  1. OPDIVO [Suspect]
     Active Substance: NIVOLUMAB
     Indication: Lung adenocarcinoma
     Dosage: FLAT DOSE, RECEIVED 2 CYCLES
     Route: 042
     Dates: start: 20210721
  2. OPDIVO [Suspect]
     Active Substance: NIVOLUMAB
     Dosage: FLAT DOSE
     Route: 042
     Dates: start: 20210818
  3. BISOPROLOL [Concomitant]
     Active Substance: BISOPROLOL
     Indication: Hypertension
     Dosage: 2.5 MG/D
     Route: 048
     Dates: start: 20200101
  4. ENALAPRIL [Concomitant]
     Active Substance: ENALAPRIL
     Indication: Hypertension
     Dosage: 20 MG/D
     Route: 048
     Dates: start: 20200101
  5. LORMETAZEPAM [Concomitant]
     Active Substance: LORMETAZEPAM
     Indication: Insomnia
     Dosage: 1 MILLIGRAM
     Route: 048
     Dates: start: 20200101

REACTIONS (7)
  - Encephalitis [Fatal]
  - Muscular weakness [Fatal]
  - Metastases to meninges [Unknown]
  - Paraneoplastic encephalomyelitis [Unknown]
  - Dizziness [Unknown]
  - Asthenia [Unknown]
  - Vomiting [Unknown]

NARRATIVE: CASE EVENT DATE: 20210914
